FAERS Safety Report 9678761 (Version 1)
Quarter: 2013Q4

REPORT INFORMATION
  Report Type: Spontaneous
  Country: US (occurrence: US)
  Receive Date: 20131108
  Receipt Date: 20131108
  Transmission Date: 20140711
  Serious: Yes (Death, Other)
  Sender: FDA-Public Use
  Company Number: US-BRISTOL-MYERS SQUIBB COMPANY-19717339

PATIENT
  Age: 50 Year
  Sex: 0

DRUGS (1)
  1. COUMADIN [Suspect]

REACTIONS (3)
  - Death [Fatal]
  - Epistaxis [Unknown]
  - Dyspnoea [Unknown]
